FAERS Safety Report 8009930-5 (Version None)
Quarter: 2011Q4

REPORT INFORMATION
  Report Type: 
  Country: None (occurrence: None)
  Receive Date: 20111228
  Receipt Date: 20111216
  Transmission Date: 20120403
  Serious: Yes (Hospitalization)
  Sender: FDA-Public Use
  Company Number: PHHY2011BE111010

PATIENT
  Age: 62 Year
  Sex: Female

DRUGS (4)
  1. SANDOSTATIN LAR [Suspect]
     Dosage: 20 MG, QMO
     Route: 030
     Dates: start: 20111118
  2. LAXATIVES [Concomitant]
  3. SANDOSTATIN LAR [Suspect]
     Indication: DIARRHOEA
     Dosage: 20 MG, QMO
     Route: 030
     Dates: start: 20110501
  4. IMODIUM [Concomitant]

REACTIONS (1)
  - DIARRHOEA [None]
